FAERS Safety Report 5042907-0 (Version None)
Quarter: 2006Q3

REPORT INFORMATION
  Report Type: 
  Country: None (occurrence: None)
  Receive Date: 20060705
  Receipt Date: 20060623
  Transmission Date: 20061208
  Serious: Yes (Hospitalization)
  Sender: FDA-Public Use
  Company Number: JP-ROCHE-452978

PATIENT
  Age: 64 Year
  Sex: Male

DRUGS (6)
  1. PANALDINE [Suspect]
     Indication: ANGINA PECTORIS
     Dosage: ADDITIONAL INDICATION: DILATED CARDIOMYOPATHY
     Route: 048
     Dates: start: 20060515, end: 20060525
  2. ASPIRIN [Concomitant]
     Route: 048
     Dates: start: 20060410
  3. MICARDIS [Concomitant]
     Route: 048
     Dates: start: 20060410, end: 20060416
  4. LASIX [Concomitant]
     Route: 048
     Dates: start: 20060410
  5. ACINON [Concomitant]
     Route: 048
     Dates: start: 20060412
  6. ALDACTONE [Concomitant]
     Route: 048
     Dates: start: 20060424

REACTIONS (3)
  - GAMMA-GLUTAMYLTRANSFERASE INCREASED [None]
  - HEPATOCELLULAR DAMAGE [None]
  - LIVER DISORDER [None]
